FAERS Safety Report 7000146-8 (Version None)
Quarter: 2010Q3

REPORT INFORMATION
  Report Type: 
  Country: None (occurrence: None)
  Receive Date: 20100920
  Receipt Date: 20091028
  Transmission Date: 20110219
  Serious: No
  Sender: FDA-Public Use
  Company Number: US-ASTRAZENECA-2009SE23201

PATIENT
  Age: 21 Year
  Sex: Male

DRUGS (5)
  1. SEROQUEL [Suspect]
     Indication: BIPOLAR DISORDER
     Route: 048
     Dates: end: 20091028
  2. BACLIFEN [Concomitant]
  3. SUBUTEX [Concomitant]
  4. CLONOPIN [Concomitant]
  5. LAMICTAL [Concomitant]

REACTIONS (4)
  - FATIGUE [None]
  - INCREASED APPETITE [None]
  - INTENTIONAL DRUG MISUSE [None]
  - SOMNOLENCE [None]
